FAERS Safety Report 12888821 (Version 1)
Quarter: 2016Q4

REPORT INFORMATION
  Report Type: Other
  Country: US (occurrence: US)
  Receive Date: 20161027
  Receipt Date: 20161027
  Transmission Date: 20170207
  Serious: Yes (Other)
  Sender: FDA-Public Use
  Company Number: US-ACORDA-ACO_129426_2016

PATIENT
  Age: 42 Year
  Sex: Male

DRUGS (1)
  1. AMPYRA [Suspect]
     Active Substance: DALFAMPRIDINE
     Indication: MULTIPLE SCLEROSIS
     Dosage: 10 MG, Q 12 HRS
     Route: 048
     Dates: start: 201409

REACTIONS (5)
  - Blood urine present [Unknown]
  - Abdominal lymphadenopathy [Unknown]
  - Hepatic steatosis [Unknown]
  - Pancreatic pseudocyst [Unknown]
  - Pancreatic neoplasm [Unknown]

NARRATIVE: CASE EVENT DATE: 20141030
